FAERS Safety Report 22886571 (Version 3)
Quarter: 2024Q1

REPORT INFORMATION
  Report Type: Report from Study
  Country: MX (occurrence: MX)
  Receive Date: 20230831
  Receipt Date: 20240120
  Transmission Date: 20240409
  Serious: Yes (Other)
  Sender: FDA-Public Use
  Company Number: MX-JNJFOC-20230815926

PATIENT
  Age: 43 Year
  Sex: Female
  Weight: 61 kg

DRUGS (4)
  1. SIMPONI [Suspect]
     Active Substance: GOLIMUMAB
     Indication: Rheumatoid arthritis
     Dosage: LAST APPLICATION WAS ON 22-JULY-2023
     Route: 058
     Dates: start: 20211214
  2. SIMPONI [Suspect]
     Active Substance: GOLIMUMAB
     Dosage: LAST APPLICATION WAS ON 22-JULY-2023
     Route: 058
     Dates: start: 20230411
  3. METHOTREXATE [Concomitant]
     Active Substance: METHOTREXATE
  4. CELECOXIB [Concomitant]
     Active Substance: CELECOXIB

REACTIONS (6)
  - Bone disorder [Not Recovered/Not Resolved]
  - Joint effusion [Not Recovered/Not Resolved]
  - Inflammation [Not Recovered/Not Resolved]
  - COVID-19 [Unknown]
  - Arthralgia [Not Recovered/Not Resolved]
  - Inappropriate schedule of product administration [Unknown]

NARRATIVE: CASE EVENT DATE: 20230803
